FAERS Safety Report 8604498-4 (Version None)
Quarter: 2012Q3

REPORT INFORMATION
  Report Type: 
  Country: None (occurrence: None)
  Receive Date: 20120806
  Receipt Date: 20120806
  Transmission Date: 20120928
  Serious: No
  Sender: FDA-Public Use
  Company Number: None

PATIENT
  Age: 52 Year
  Sex: Female
  Weight: 74.1 kg

DRUGS (1)
  1. VANCOMYCIN [Suspect]
     Dosage: 1 GM ONCE IV
     Route: 042
     Dates: start: 20120424, end: 20120424

REACTIONS (5)
  - URTICARIA [None]
  - RED MAN SYNDROME [None]
  - RASH [None]
  - ERYTHEMA MULTIFORME [None]
  - PRURITUS [None]
